FAERS Safety Report 26023338 (Version 1)
Quarter: 2025Q4

REPORT INFORMATION
  Report Type: Report from Study
  Country: KR (occurrence: KR)
  Receive Date: 20251110
  Receipt Date: 20251110
  Transmission Date: 20260117
  Serious: Yes (Death, Hospitalization, Other)
  Sender: ABBVIE
  Company Number: KR-ABBVIE-6540352

PATIENT
  Age: 74 Year
  Sex: Female
  Weight: 66 kg

DRUGS (9)
  1. VENCLEXTA [Suspect]
     Active Substance: VENETOCLAX
     Indication: Acute myeloid leukaemia
     Route: 048
     Dates: start: 20251021, end: 20251025
  2. VENCLEXTA [Suspect]
     Active Substance: VENETOCLAX
     Indication: Acute myeloid leukaemia
     Route: 048
     Dates: start: 20250716, end: 20250805
  3. VENCLEXTA [Suspect]
     Active Substance: VENETOCLAX
     Indication: Acute myeloid leukaemia
     Route: 048
     Dates: start: 20250928, end: 20251012
  4. VENCLEXTA [Suspect]
     Active Substance: VENETOCLAX
     Indication: Acute myeloid leukaemia
     Route: 048
     Dates: start: 20250825, end: 20250907
  5. LENOGRASTIM [Concomitant]
     Active Substance: LENOGRASTIM
     Indication: Neutropenia
     Route: 058
     Dates: start: 20250805, end: 20250805
  6. ALLOPURINOL [Concomitant]
     Active Substance: ALLOPURINOL
     Indication: Prophylaxis
     Dosage: TIME INTERVAL: 0.33333333 DAYS
     Route: 048
     Dates: start: 20250716, end: 20250720
  7. DECILID [Concomitant]
     Indication: Acute myeloid leukaemia
     Route: 042
     Dates: start: 20250928, end: 20251002
  8. DECILID [Concomitant]
     Indication: Acute myeloid leukaemia
     Route: 042
     Dates: start: 20250716, end: 20250720
  9. DECILID [Concomitant]
     Indication: Acute myeloid leukaemia
     Route: 042
     Dates: start: 20250825, end: 20250829

REACTIONS (3)
  - Sepsis [Fatal]
  - Cytopenia [Recovered/Resolved]
  - Sepsis [Recovered/Resolved]

NARRATIVE: CASE EVENT DATE: 20250811
